FAERS Safety Report 14145184 (Version 1)
Quarter: 2017Q4

REPORT INFORMATION
  Report Type: Spontaneous
  Country: CH (occurrence: CH)
  Receive Date: 20171031
  Receipt Date: 20171031
  Transmission Date: 20180321
  Serious: Yes (Hospitalization, Other)
  Sender: FDA-Public Use
  Company Number: CH-PFIZER INC-2016569750

PATIENT
  Sex: Male

DRUGS (3)
  1. TEMESTA (LORAZEPAM) [Suspect]
     Active Substance: LORAZEPAM
     Dosage: 1 MG, 3X/DAY IN RESERVE
     Route: 064
     Dates: start: 201606
  2. FOLIC ACID. [Concomitant]
     Active Substance: FOLIC ACID
     Dosage: 5 MG, DAILY
  3. CIPRALEX [Suspect]
     Active Substance: ESCITALOPRAM OXALATE
     Dosage: 10 MG, 1X/DAY
     Route: 064
     Dates: start: 201606

REACTIONS (5)
  - Transient tachypnoea of the newborn [Unknown]
  - Maternal exposure during pregnancy [Recovered/Resolved]
  - Sepsis neonatal [Unknown]
  - Hypoglycaemia [Unknown]
  - Neonatal disorder [Unknown]

NARRATIVE: CASE EVENT DATE: 201608
